FAERS Safety Report 17103055 (Version 1)
Quarter: 2019Q4

REPORT INFORMATION
  Report Type: Spontaneous
  Country: US (occurrence: US)
  Receive Date: 20191203
  Receipt Date: 20191203
  Transmission Date: 20200122
  Serious: No
  Sender: FDA-Public Use
  Company Number: US-ELI_LILLY_AND_COMPANY-US201911012798

PATIENT
  Sex: Female

DRUGS (1)
  1. FORTEO [Suspect]
     Active Substance: TERIPARATIDE
     Indication: PRODUCT USED FOR UNKNOWN INDICATION
     Dosage: UNK UNK, UNKNOWN
     Route: 065

REACTIONS (8)
  - Hypoacusis [Unknown]
  - Tremor [Unknown]
  - Bone pain [Unknown]
  - Myalgia [Unknown]
  - Pain [Unknown]
  - Injection site pain [Unknown]
  - Injection site bruising [Unknown]
  - Rhinorrhoea [Unknown]
